FAERS Safety Report 11172062 (Version 1)
Quarter: 2015Q2

REPORT INFORMATION
  Report Type: Spontaneous
  Country: US (occurrence: None)
  Receive Date: 20150605
  Receipt Date: 20150605
  Transmission Date: 20150821
  Serious: Yes (Life-Threatening, Other)
  Sender: FDA-Public Use
  Company Number: None

PATIENT
  Age: 66 Year
  Sex: Female
  Weight: 58.97 kg

DRUGS (1)
  1. METHELPHENIDATE [Suspect]
     Active Substance: METHYLPHENIDATE
     Indication: ATTENTION DEFICIT/HYPERACTIVITY DISORDER

REACTIONS (7)
  - Hypertension [None]
  - Product substitution issue [None]
  - Heart rate increased [None]
  - Gait disturbance [None]
  - Deafness [None]
  - Impaired driving ability [None]
  - Visual impairment [None]

NARRATIVE: CASE EVENT DATE: 20150529
